FAERS Safety Report 10867877 (Version 1)
Quarter: 2015Q1

REPORT INFORMATION
  Report Type: Spontaneous
  Country: US (occurrence: US)
  Receive Date: 20150225
  Receipt Date: 20150225
  Transmission Date: 20150721
  Serious: No
  Sender: FDA-Public Use
  Company Number: US-BAUSCH-BL-2014-003513

PATIENT
  Age: 82 Year
  Sex: Female

DRUGS (3)
  1. DUREZOL [Suspect]
     Active Substance: DIFLUPREDNATE
     Indication: POSTOPERATIVE CARE
     Dosage: IN RIGHT EYE
     Route: 047
  2. DUREZOL [Suspect]
     Active Substance: DIFLUPREDNATE
     Dosage: IN RIGHT EYE
     Route: 047
  3. DICLOFENAC OPHTHALMIC [Suspect]
     Active Substance: DICLOFENAC SODIUM
     Indication: POSTOPERATIVE CARE
     Dosage: IN RIGHT EYES
     Route: 047

REACTIONS (1)
  - Rash [Not Recovered/Not Resolved]
